FAERS Safety Report 21596843 (Version 3)
Quarter: 2022Q4

REPORT INFORMATION
  Report Type: Spontaneous
  Country: US (occurrence: US)
  Receive Date: 20221115
  Receipt Date: 20221215
  Transmission Date: 20230113
  Serious: No
  Sender: FDA-Public Use
  Company Number: US-PFIZER INC-202201293824

PATIENT
  Age: 34 Year
  Sex: Female
  Weight: 54.43 kg

DRUGS (2)
  1. PAXLOVID [Suspect]
     Active Substance: NIRMATRELVIR\RITONAVIR
     Indication: COVID-19 treatment
     Dosage: UNK
     Dates: start: 20221109
  2. ALBUTEROL [Concomitant]
     Active Substance: ALBUTEROL
     Indication: Asthma
     Dosage: UNK

REACTIONS (5)
  - Malaise [Unknown]
  - Dysgeusia [Unknown]
  - Parosmia [Unknown]
  - Feeding disorder [Unknown]
  - Incorrect dose administered [Unknown]
